FAERS Safety Report 11489253 (Version 1)
Quarter: 2015Q3

REPORT INFORMATION
  Report Type: Report from Study
  Country: AR (occurrence: AR)
  Receive Date: 20150909
  Receipt Date: 20150909
  Transmission Date: 20151125
  Serious: Yes (Other)
  Sender: FDA-Public Use
  Company Number: PHHY2012AR099341

PATIENT
  Age: 71 Year
  Sex: Female
  Weight: 58 kg

DRUGS (7)
  1. EXFORGE [Suspect]
     Active Substance: AMLODIPINE BESYLATE\VALSARTAN
     Indication: HYPERTENSION
     Dosage: 160/5 (UNSPECIFIED UNITS)
     Route: 065
  2. PREGABALIN. [Concomitant]
     Active Substance: PREGABALIN
     Indication: PRODUCT USED FOR UNKNOWN INDICATION
     Dosage: 75 MG, UNK
     Route: 065
  3. GALVUS [Suspect]
     Active Substance: VILDAGLIPTIN
     Dosage: 50 MG, QD (15 DAYS AGO)
     Route: 065
  4. LEVOTHYROXINE. [Concomitant]
     Active Substance: LEVOTHYROXINE
     Indication: PRODUCT USED FOR UNKNOWN INDICATION
     Route: 065
  5. GALVUS [Suspect]
     Active Substance: VILDAGLIPTIN
     Indication: TYPE 1 DIABETES MELLITUS
     Dosage: 50 MG, QD (03 YEARS AGO)
     Route: 065
     Dates: end: 201209
  6. ALPHA LIPOIC ACID [Concomitant]
     Active Substance: .ALPHA.-LIPOIC ACID
     Indication: PRODUCT USED FOR UNKNOWN INDICATION
     Route: 065
  7. INSULIN ASPART [Concomitant]
     Active Substance: INSULIN ASPART
     Indication: TYPE 1 DIABETES MELLITUS
     Dosage: UNK
     Route: 065

REACTIONS (10)
  - Hypoglycaemia [Recovering/Resolving]
  - Headache [Not Recovered/Not Resolved]
  - Feeling abnormal [Unknown]
  - Ear pain [Not Recovered/Not Resolved]
  - Deafness [Not Recovered/Not Resolved]
  - Malaise [Unknown]
  - Hyperglycaemia [Recovering/Resolving]
  - Amnesia [Not Recovered/Not Resolved]
  - Anxiety [Unknown]
  - Hypertension [Recovering/Resolving]

NARRATIVE: CASE EVENT DATE: 20121010
